FAERS Safety Report 23337830 (Version 7)
Quarter: 2024Q1

REPORT INFORMATION
  Report Type: Spontaneous
  Country: US (occurrence: US)
  Receive Date: 20231226
  Receipt Date: 20240320
  Transmission Date: 20240410
  Serious: Yes (Other)
  Sender: FDA-Public Use
  Company Number: US-PFIZER INC-PV202300202027

PATIENT
  Age: 55 Year
  Sex: Female

DRUGS (3)
  1. IBRANCE [Interacting]
     Active Substance: PALBOCICLIB
     Dosage: 75 MG, 1X/DAY
     Dates: start: 20231209
  2. IBRANCE [Interacting]
     Active Substance: PALBOCICLIB
     Dosage: 75 MG, 1X/DAY
     Dates: end: 20240206
  3. PRILOSEC [Interacting]
     Active Substance: OMEPRAZOLE MAGNESIUM
     Dosage: UNK

REACTIONS (14)
  - Hypotension [Recovered/Resolved]
  - Drug interaction [Unknown]
  - Dyspnoea [Recovering/Resolving]
  - Chest discomfort [Recovered/Resolved]
  - Gastrooesophageal reflux disease [Unknown]
  - Muscle spasms [Recovered/Resolved]
  - Toothache [Unknown]
  - Abdominal discomfort [Unknown]
  - Fatigue [Unknown]
  - Blood glucose abnormal [Unknown]
  - Blood glucose decreased [Unknown]
  - Dizziness [Unknown]
  - Eosinophilic gastritis [Unknown]
  - Oesophagitis [Recovering/Resolving]

NARRATIVE: CASE EVENT DATE: 20231209
